FAERS Safety Report 21109460 (Version 1)
Quarter: 2022Q3

REPORT INFORMATION
  Report Type: Spontaneous
  Country: US (occurrence: US)
  Receive Date: 20220721
  Receipt Date: 20220721
  Transmission Date: 20221027
  Serious: No
  Sender: FDA-Public Use
  Company Number: US-ENDO PHARMACEUTICALS INC-2022-003959

PATIENT
  Sex: Female

DRUGS (3)
  1. QWO [Suspect]
     Active Substance: COLLAGENASE CLOSTRIDIUM HISTOLYTICUM-AAES
     Indication: Cellulite
     Dosage: UNK UNKNOWN, UNKNOWN, TREATMENT ONE (RECEIVED TOTAL 12 INJECTIONS)
     Route: 058
     Dates: start: 20220415
  2. QWO [Suspect]
     Active Substance: COLLAGENASE CLOSTRIDIUM HISTOLYTICUM-AAES
     Dosage: UNK UNKNOWN, UNKNOWN, TREATMENT TWO (NUMBER OF INJECTIONS NOT CLARIFIED)
     Route: 058
     Dates: start: 20220506
  3. QWO [Suspect]
     Active Substance: COLLAGENASE CLOSTRIDIUM HISTOLYTICUM-AAES
     Dosage: UNK UNKNOWN, UNKNOWN, TREATMENT THREE (NUMBER OF INJECTIONS NOT CLARIFIED)
     Route: 058
     Dates: start: 20220527

REACTIONS (4)
  - Contusion [Unknown]
  - Cellulite [Unknown]
  - Product preparation issue [Unknown]
  - Off label use [Unknown]

NARRATIVE: CASE EVENT DATE: 20220101
